FAERS Safety Report 20687175 (Version 1)
Quarter: 2022Q2

REPORT INFORMATION
  Report Type: Spontaneous
  Country: HR (occurrence: HR)
  Receive Date: 20220407
  Receipt Date: 20220407
  Transmission Date: 20220720
  Serious: Yes (Other)
  Sender: FDA-Public Use
  Company Number: HR-JNJFOC-20220404118

PATIENT
  Age: 44 Year
  Sex: Female
  Weight: 60 kg

DRUGS (3)
  1. HALOPERIDOL [Suspect]
     Active Substance: HALOPERIDOL
     Indication: Product used for unknown indication
     Route: 048
     Dates: start: 20211208, end: 20211208
  2. NORMABEL [Suspect]
     Active Substance: DIAZEPAM
     Indication: Product used for unknown indication
     Route: 048
     Dates: start: 20211208, end: 20211208
  3. OLANZAPINE [Suspect]
     Active Substance: OLANZAPINE
     Indication: Product used for unknown indication
     Route: 048
     Dates: start: 20211208

REACTIONS (5)
  - Suicide attempt [Unknown]
  - Sopor [Unknown]
  - Loss of consciousness [Unknown]
  - Intentional overdose [Unknown]
  - Hypotension [Unknown]

NARRATIVE: CASE EVENT DATE: 20211208
